FAERS Safety Report 22119014 (Version 1)
Quarter: 2023Q1

REPORT INFORMATION
  Report Type: Spontaneous
  Country: IN (occurrence: IN)
  Receive Date: 20230321
  Receipt Date: 20230321
  Transmission Date: 20230418
  Serious: Yes (Life-Threatening, Other)
  Sender: FDA-Public Use
  Company Number: IN-SUN PHARMACEUTICAL INDUSTRIES LTD-2023R1-382098

PATIENT
  Age: 18 Year
  Sex: Female

DRUGS (8)
  1. LEVETIRACETAM [Suspect]
     Active Substance: LEVETIRACETAM
     Indication: Hypotension
     Dosage: 500 MILLIGRAM, BID
     Route: 065
  2. NOREPINEPHRINE [Suspect]
     Active Substance: NOREPINEPHRINE
     Indication: Hypotension
     Dosage: UNK
     Route: 065
  3. PIPERACILLIN SODIUM\TAZOBACTAM SODIUM [Suspect]
     Active Substance: PIPERACILLIN SODIUM\TAZOBACTAM SODIUM
     Indication: Hypotension
     Dosage: 500 MILLIGRAM, TID
     Route: 065
  4. MANNITOL [Suspect]
     Active Substance: MANNITOL
     Indication: Hypotension
     Dosage: 100 MILLIGRAM, DAILY
     Route: 065
  5. VITAMIN B12 [Suspect]
     Active Substance: CYANOCOBALAMIN
     Indication: Hypotension
     Dosage: UNK (ONCE DAILY)
     Route: 065
  6. FOLVITE [Suspect]
     Active Substance: FOLIC ACID
     Indication: Hypotension
     Dosage: 10 MILLIGRAM, DAILY
     Route: 065
  7. DOPAMINE [Concomitant]
     Active Substance: DOPAMINE HYDROCHLORIDE
     Indication: Hypotension
     Dosage: UNK (5 ML/HOUR)
     Route: 065
  8. HEPARIN [Concomitant]
     Active Substance: HEPARIN SODIUM
     Indication: Hypotension
     Dosage: UNK (5000 UNIT EVERY 8 HOURS)
     Route: 065

REACTIONS (2)
  - Condition aggravated [Unknown]
  - Brain death [Unknown]

NARRATIVE: CASE EVENT DATE: 20210619
